FAERS Safety Report 17160439 (Version 1)
Quarter: 2019Q4

REPORT INFORMATION
  Report Type: Spontaneous
  Country: PL (occurrence: PL)
  Receive Date: 20191216
  Receipt Date: 20191216
  Transmission Date: 20200122
  Serious: Yes (Other)
  Sender: FDA-Public Use
  Company Number: PL-BAUSCH-BL-2019-064349

PATIENT
  Age: 25 Year
  Sex: Male

DRUGS (3)
  1. GEMCITABINE. [Suspect]
     Active Substance: GEMCITABINE
     Indication: HODGKIN^S DISEASE NODULAR SCLEROSIS STAGE II
     Dosage: 2 CYCLICAL
     Route: 065
     Dates: start: 201510, end: 201511
  2. BENDAMUSTINE [Suspect]
     Active Substance: BENDAMUSTINE
     Indication: HODGKIN^S DISEASE NODULAR SCLEROSIS STAGE II
     Dosage: 2 CYCLICAL
     Route: 065
     Dates: start: 201510, end: 201611
  3. DEXAMETHASONE. [Suspect]
     Active Substance: DEXAMETHASONE
     Indication: HODGKIN^S DISEASE NODULAR SCLEROSIS STAGE II
     Dosage: 2 CYCLICAL
     Route: 065
     Dates: start: 201510, end: 201511

REACTIONS (3)
  - Escherichia infection [Unknown]
  - Stenotrophomonas sepsis [Unknown]
  - Stenotrophomonas infection [Unknown]

NARRATIVE: CASE EVENT DATE: 2015
